FAERS Safety Report 13720420 (Version 1)
Quarter: 2017Q3

REPORT INFORMATION
  Report Type: Report from Study
  Country: BR (occurrence: BR)
  Receive Date: 20170706
  Receipt Date: 20170706
  Transmission Date: 20171127
  Serious: Yes (Other)
  Sender: FDA-Public Use
  Company Number: BR-BRISTOL-MYERS SQUIBB COMPANY-BMS-2017-056744

PATIENT
  Age: 46 Year
  Sex: Male

DRUGS (1)
  1. BELATACEPT [Suspect]
     Active Substance: BELATACEPT
     Indication: RENAL TRANSPLANT
     Dosage: 200 MG, QMO
     Route: 042
     Dates: start: 20070314

REACTIONS (1)
  - Basal cell carcinoma [Recovered/Resolved]

NARRATIVE: CASE EVENT DATE: 20161027
